FAERS Safety Report 4833044-6 (Version None)
Quarter: 2005Q4

REPORT INFORMATION
  Report Type: 
  Country: None (occurrence: None)
  Receive Date: 20051121
  Receipt Date: 20051115
  Transmission Date: 20060501
  Serious: Yes (Other)
  Sender: FDA-Public Use
  Company Number: US-BRISTOL-MYERS SQUIBB COMPANY-13183231

PATIENT
  Age: 61 Year
  Sex: Female

DRUGS (4)
  1. ESTRACE [Suspect]
     Indication: MENOPAUSAL SYMPTOMS
     Dates: end: 19940712
  2. ESTRATEST H.S. [Suspect]
     Indication: MENOPAUSAL SYMPTOMS
     Dates: start: 19940712
  3. PROVERA [Suspect]
     Indication: MENOPAUSAL SYMPTOMS
  4. PREMPRO [Suspect]

REACTIONS (1)
  - BREAST CANCER METASTATIC [None]
